FAERS Safety Report 10569058 (Version 1)
Quarter: 2014Q4

REPORT INFORMATION
  Report Type: Report from Study
  Country: US (occurrence: US)
  Receive Date: 20141106
  Receipt Date: 20141106
  Transmission Date: 20150529
  Serious: Yes (Hospitalization, Other)
  Sender: FDA-Public Use
  Company Number: PHEH2014US021953

PATIENT
  Sex: Male

DRUGS (2)
  1. TOBI [Suspect]
     Active Substance: TOBRAMYCIN
     Dosage: 300 MG, BID
     Route: 055
  2. TOBI [Suspect]
     Active Substance: TOBRAMYCIN
     Indication: AMYOTROPHIC LATERAL SCLEROSIS
     Dosage: 300 MG, BID
     Route: 055

REACTIONS (3)
  - Aspiration [Recovered/Resolved with Sequelae]
  - Haemorrhage [Recovered/Resolved with Sequelae]
  - Excessive granulation tissue [Recovered/Resolved with Sequelae]
